FAERS Safety Report 20059513 (Version 1)
Quarter: 2021Q4

REPORT INFORMATION
  Report Type: Spontaneous
  Country: FR (occurrence: FR)
  Receive Date: 20211111
  Receipt Date: 20211111
  Transmission Date: 20220304
  Serious: Yes (Disabling, Congenital Anomaly, Other)
  Sender: FDA-Public Use
  Company Number: FR-ABBVIE-21K-056-4153542-00

PATIENT
  Sex: Male

DRUGS (3)
  1. VALPROATE SODIUM [Suspect]
     Active Substance: VALPROATE SODIUM
     Indication: Maternal exposure timing unspecified
     Route: 064
  2. VALPROATE SODIUM [Suspect]
     Active Substance: VALPROATE SODIUM
     Route: 064
  3. VALPROATE SODIUM [Suspect]
     Active Substance: VALPROATE SODIUM
     Route: 064

REACTIONS (53)
  - Lipoma [Unknown]
  - Personal relationship issue [Unknown]
  - Constipation [Unknown]
  - Encopresis [Unknown]
  - Stereotypy [Unknown]
  - Developmental delay [Unknown]
  - Motor developmental delay [Unknown]
  - Fine motor skill dysfunction [Unknown]
  - Dysgraphia [Unknown]
  - Sleep disorder [Unknown]
  - Otitis media [Unknown]
  - Fatigue [Unknown]
  - Emotional disorder [Unknown]
  - Deafness [Unknown]
  - Anger [Unknown]
  - Language disorder [Unknown]
  - Psychomotor skills impaired [Unknown]
  - Developmental regression [Unknown]
  - Frustration tolerance decreased [Unknown]
  - Educational problem [Unknown]
  - Intellectual disability [Unknown]
  - Enuresis [Unknown]
  - Somatic symptom disorder [Unknown]
  - Impetigo [Unknown]
  - Tracheobronchitis [Unknown]
  - Eczema [Unknown]
  - Rhinitis [Unknown]
  - Psychomotor skills impaired [Unknown]
  - Bronchitis [Unknown]
  - Laryngitis [Unknown]
  - Sinusitis [Unknown]
  - Hyperthermia [Unknown]
  - Factor VII deficiency [Unknown]
  - Joint laxity [Unknown]
  - Coagulopathy [Unknown]
  - Superinfection [Unknown]
  - Cellulitis [Unknown]
  - Foreign body in respiratory tract [Unknown]
  - Behaviour disorder [Unknown]
  - Autism spectrum disorder [Unknown]
  - Learning disorder [Unknown]
  - Aggression [Unknown]
  - Motor developmental delay [Unknown]
  - Anxiety [Unknown]
  - Psychomotor hyperactivity [Unknown]
  - Developmental delay [Unknown]
  - Psychomotor hyperactivity [Unknown]
  - Diarrhoea [Unknown]
  - Autism spectrum disorder [Unknown]
  - Seizure [Unknown]
  - Foetal anticonvulsant syndrome [Unknown]
  - Speech disorder developmental [Unknown]
  - Foetal exposure during pregnancy [Unknown]

NARRATIVE: CASE EVENT DATE: 20100201
